FAERS Safety Report 13069774 (Version 11)
Quarter: 2018Q2

REPORT INFORMATION
  Report Type: Report from Study
  Country: CA (occurrence: CA)
  Receive Date: 20161228
  Receipt Date: 20180405
  Transmission Date: 20180711
  Serious: Yes (Other)
  Sender: FDA-Public Use
  Company Number: CA-SA-2016SA236507

PATIENT
  Age: 30 Year
  Sex: Female

DRUGS (10)
  1. ACYCLOVIR. [Concomitant]
     Active Substance: ACYCLOVIR
     Indication: PREMEDICATION
     Route: 048
     Dates: start: 20161219
  2. DIPHENHYDRAMINE. [Concomitant]
     Active Substance: DIPHENHYDRAMINE
     Indication: PREMEDICATION
     Route: 042
     Dates: start: 20161219, end: 20161223
  3. VITAMIN B12 [Concomitant]
     Active Substance: CYANOCOBALAMIN
     Route: 048
  4. OMEGA 3 [Concomitant]
     Active Substance: OMEGA-3 FATTY ACIDS
     Route: 048
  5. ACETAMINOPHEN. [Concomitant]
     Active Substance: ACETAMINOPHEN
     Route: 048
  6. DIMENHYDRINATE. [Concomitant]
     Active Substance: DIMENHYDRINATE
     Indication: PREMEDICATION
     Route: 042
     Dates: start: 20161219, end: 20161223
  7. LEMTRADA [Suspect]
     Active Substance: ALEMTUZUMAB
     Indication: RELAPSING-REMITTING MULTIPLE SCLEROSIS
     Route: 041
     Dates: start: 20161219, end: 20161223
  8. METHYLPREDNISOLONE. [Concomitant]
     Active Substance: METHYLPREDNISOLONE
     Indication: PREMEDICATION
     Route: 042
     Dates: start: 20161219, end: 20161223
  9. VITAMIN D [Concomitant]
     Active Substance: CHOLECALCIFEROL
     Route: 048
  10. FOLIC ACID. [Concomitant]
     Active Substance: FOLIC ACID
     Route: 048

REACTIONS (28)
  - Productive cough [Recovered/Resolved]
  - Sinusitis [Recovered/Resolved]
  - Headache [Recovered/Resolved]
  - Disturbance in attention [Recovered/Resolved]
  - Body temperature increased [Recovered/Resolved]
  - Chest discomfort [Recovered/Resolved]
  - Mental impairment [Recovered/Resolved]
  - Chills [Recovered/Resolved]
  - Rash generalised [Recovered/Resolved]
  - Pain [Recovered/Resolved]
  - Blood urine present [Recovered/Resolved]
  - Eye irritation [Recovered/Resolved]
  - Initial insomnia [Recovered/Resolved]
  - Fatigue [Recovered/Resolved]
  - Infection [Recovered/Resolved]
  - Throat irritation [Recovered/Resolved]
  - Flushing [Recovered/Resolved]
  - Asthenia [Recovered/Resolved]
  - Ear pain [Recovered/Resolved]
  - Dry mouth [Recovered/Resolved]
  - Exposure during pregnancy [Unknown]
  - Ocular hyperaemia [Recovered/Resolved]
  - Abdominal discomfort [Recovered/Resolved]
  - Dry throat [Recovered/Resolved]
  - Vision blurred [Not Recovered/Not Resolved]
  - Oropharyngeal pain [Recovered/Resolved]
  - Loss of control of legs [Recovered/Resolved]
  - Dry eye [Recovered/Resolved]

NARRATIVE: CASE EVENT DATE: 20161219
